FAERS Safety Report 18515490 (Version 1)
Quarter: 2020Q4

REPORT INFORMATION
  Report Type: Other
  Country: US (occurrence: US)
  Receive Date: 20201118
  Receipt Date: 20201118
  Transmission Date: 20210114
  Serious: Yes (Hospitalization, Other)
  Sender: FDA-Public Use
  Company Number: US-ROCHE-2591497

PATIENT
  Age: 66 Year
  Sex: Female
  Weight: 54.93 kg

DRUGS (11)
  1. OCREVUS [Suspect]
     Active Substance: OCRELIZUMAB
     Indication: RELAPSING-REMITTING MULTIPLE SCLEROSIS
     Dosage: SPLIT DOSE?DATE OF TREATMENT: 29/SEP/2017, 17/APR/2018, 13/OCT/2018, 13/APR/2019, 11/OCT/2019, 21/OC
     Route: 042
     Dates: start: 20170915, end: 20200414
  2. DEPAKOTE [Suspect]
     Active Substance: DIVALPROEX SODIUM
     Indication: SEIZURE
     Route: 048
     Dates: start: 201812, end: 201903
  3. SINGULAIR [Concomitant]
     Active Substance: MONTELUKAST SODIUM
     Indication: SEASONAL ALLERGY
     Route: 048
     Dates: start: 2010
  4. LASIX [Concomitant]
     Active Substance: FUROSEMIDE
     Indication: URINARY RETENTION
     Route: 048
  5. METOPROLOL. [Concomitant]
     Active Substance: METOPROLOL
     Indication: HYPERTENSION
     Route: 048
     Dates: start: 2016
  6. AMANTADINE. [Concomitant]
     Active Substance: AMANTADINE HYDROCHLORIDE
     Indication: MUSCLE SPASMS
     Route: 048
     Dates: start: 2010
  7. OCREVUS [Suspect]
     Active Substance: OCRELIZUMAB
     Indication: SECONDARY PROGRESSIVE MULTIPLE SCLEROSIS
  8. LOSARTAN AND HYDROCHLOROTHIAZIDE [Concomitant]
     Active Substance: HYDROCHLOROTHIAZIDE\LOSARTAN POTASSIUM
     Indication: HYPERTENSION
     Route: 048
  9. ATORVASTATIN [Concomitant]
     Active Substance: ATORVASTATIN
     Route: 048
     Dates: start: 2012
  10. LACOSAMIDE. [Suspect]
     Active Substance: LACOSAMIDE
     Indication: SEIZURE
     Route: 048
     Dates: start: 201903, end: 201903
  11. IRON [Concomitant]
     Active Substance: IRON
     Route: 048

REACTIONS (14)
  - Transfusion reaction [Recovered/Resolved]
  - Alopecia [Recovered/Resolved]
  - Fall [Unknown]
  - Dizziness [Unknown]
  - Diarrhoea [Recovered/Resolved]
  - Seizure [Recovered/Resolved]
  - COVID-19 [Recovering/Resolving]
  - Gastrointestinal haemorrhage [Unknown]
  - Pyrexia [Recovered/Resolved]
  - Tremor [Recovered/Resolved]
  - Ataxia [Recovered/Resolved]
  - Lethargy [Unknown]
  - Hypoacusis [Not Recovered/Not Resolved]
  - Cerebrovascular accident [Recovered/Resolved]

NARRATIVE: CASE EVENT DATE: 2018
